FAERS Safety Report 9072324 (Version 1)
Quarter: 2013Q1

REPORT INFORMATION
  Report Type: Spontaneous
  Country: US (occurrence: US)
  Receive Date: 20130206
  Receipt Date: 20130206
  Transmission Date: 20140127
  Serious: No
  Sender: FDA-Public Use
  Company Number: US-ALLERGAN-1215234US

PATIENT
  Age: 66 Year
  Sex: Female

DRUGS (4)
  1. RESTASIS? [Suspect]
     Indication: DRY EYE
     Dosage: 2 GTT, BID
     Route: 047
     Dates: start: 2011, end: 201209
  2. LAMICTAL [Concomitant]
     Indication: PRODUCT USED FOR UNKNOWN INDICATION
     Dosage: UNK
  3. TRAZADONE [Concomitant]
     Indication: INSOMNIA
     Dosage: UNK, QHS
     Route: 048
  4. LASTACAFT [Concomitant]
     Indication: EYE ALLERGY
     Dosage: UNK UNK, PRN
     Route: 047

REACTIONS (2)
  - Lacrimation increased [Recovering/Resolving]
  - Eye discharge [Recovering/Resolving]
